FAERS Safety Report 8381265-0 (Version None)
Quarter: 2012Q2

REPORT INFORMATION
  Report Type: 
  Country: None (occurrence: None)
  Receive Date: 20120523
  Receipt Date: 20120510
  Transmission Date: 20120825
  Serious: Yes (Other)
  Sender: FDA-Public Use
  Company Number: SE-AMGEN-US340547

PATIENT
  Age: 39 Year
  Sex: Female

DRUGS (6)
  1. METHOTREXATE [Concomitant]
     Dosage: UNK
     Dates: start: 20050101
  2. TIBINIDE [Concomitant]
     Dosage: UNK
     Dates: start: 20060301, end: 20060101
  3. FOLACIN                            /00198401/ [Concomitant]
     Dosage: UNK
  4. ENBREL [Suspect]
     Indication: PSORIASIS
     Dosage: 25 MG, 2 TIMES/WK
     Dates: start: 20080301, end: 20080601
  5. PYRIDOXINE                         /00058902/ [Concomitant]
     Dosage: UNK
     Dates: start: 20060301, end: 20060101
  6. ENBREL [Suspect]
     Dosage: 25 MG, 2 TIMES/WK
     Dates: start: 20081101, end: 20090313

REACTIONS (2)
  - OPTIC NEURITIS [None]
  - MULTIPLE SCLEROSIS [None]
